FAERS Safety Report 16395582 (Version 2)
Quarter: 2019Q3

REPORT INFORMATION
  Report Type: Report from Study
  Country: CA (occurrence: CA)
  Receive Date: 20190605
  Receipt Date: 20190716
  Transmission Date: 20191004
  Serious: Yes (Death, Hospitalization)
  Sender: FDA-Public Use
  Company Number: CA-ACTELION-A-NJ2019-191242

PATIENT
  Age: 70 Year
  Sex: Female

DRUGS (12)
  1. HYDROCHLOROTHIAZIDE. [Concomitant]
     Active Substance: HYDROCHLOROTHIAZIDE
  2. NEXIUM [Concomitant]
     Active Substance: ESOMEPRAZOLE MAGNESIUM
  3. ELTROXIN [Concomitant]
     Active Substance: LEVOTHYROXINE
  4. PROLIA [Concomitant]
     Active Substance: DENOSUMAB
     Dosage: Q 6 MONTHS
  5. PREDNISONE BRECKENRIDGE [Concomitant]
  6. ASA [Concomitant]
     Active Substance: ASPIRIN
  7. BISOPROLOL [Concomitant]
     Active Substance: BISOPROLOL
  8. HYDROXYCHLOROQUINE [Concomitant]
     Active Substance: HYDROXYCHLOROQUINE
  9. VITAMIN D [Concomitant]
     Active Substance: VITAMIN D NOS
  10. FUROSEMIDE. [Concomitant]
     Active Substance: FUROSEMIDE
  11. OPSUMIT [Suspect]
     Active Substance: MACITENTAN
     Indication: PULMONARY ARTERIAL HYPERTENSION
     Dosage: 10 MG
     Route: 048
     Dates: start: 20160209
  12. ADALAT [Concomitant]
     Active Substance: NIFEDIPINE

REACTIONS (3)
  - Death [Fatal]
  - Malaise [Not Recovered/Not Resolved]
  - Hospitalisation [Not Recovered/Not Resolved]

NARRATIVE: CASE EVENT DATE: 20190628
